FAERS Safety Report 4349994-3 (Version None)
Quarter: 2004Q2

REPORT INFORMATION
  Report Type: 
  Country: None (occurrence: None)
  Receive Date: 20040426
  Receipt Date: 20040414
  Transmission Date: 20050107
  Serious: Yes (Hospitalization)
  Sender: FDA-Public Use
  Company Number: 2004-01586

PATIENT
  Age: 56 Year
  Sex: Female
  Weight: 68.9 kg

DRUGS (13)
  1. BUSPIRONE HCL [Suspect]
     Indication: CARDIAC DISORDER
     Dosage: 1 TABLET, BID, ORAL
     Route: 048
     Dates: start: 20031116, end: 20040116
  2. BUSPIRONE HCL [Suspect]
     Indication: PROPHYLAXIS
     Dosage: 1 TABLET, BID, ORAL
     Route: 048
     Dates: start: 20031116, end: 20040116
  3. ALPRAZOLAM [Suspect]
     Indication: CARDIAC DISORDER
     Dosage: 0.5 MG, TID, ORAL
     Route: 048
     Dates: start: 19940101, end: 20031101
  4. ALPRAZOLAM [Suspect]
     Indication: PROPHYLAXIS
     Dosage: 0.5 MG, TID, ORAL
     Route: 048
     Dates: start: 19940101, end: 20031101
  5. LOPRESSOR [Concomitant]
  6. LANOXIN [Concomitant]
  7. SYNTHROID [Concomitant]
  8. NEURONTIN [Concomitant]
  9. HYDROCODONE [Concomitant]
  10. FLOVENT [Concomitant]
  11. COMBIVENT (IPRATROPIUM, SALBUTAMOL SULFATE) [Concomitant]
  12. ISOSORBIDE MONONITRATE [Concomitant]
  13. TOPROL-XL [Concomitant]

REACTIONS (54)
  - ABNORMAL DREAMS [None]
  - ABNORMAL SENSATION IN EYE [None]
  - ALOPECIA [None]
  - APHONIA [None]
  - APPETITE DISORDER [None]
  - BREAST SWELLING [None]
  - BURNING SENSATION [None]
  - CHEST PAIN [None]
  - COLD SWEAT [None]
  - CONSTIPATION [None]
  - CONTUSION [None]
  - CRYING [None]
  - DIARRHOEA [None]
  - DIZZINESS [None]
  - DRUG WITHDRAWAL SYNDROME [None]
  - DRY MOUTH [None]
  - DRY SKIN [None]
  - DYSARTHRIA [None]
  - DYSGEUSIA [None]
  - DYSKINESIA [None]
  - EPISTAXIS [None]
  - EYELID DISORDER [None]
  - FEAR [None]
  - FLATULENCE [None]
  - GLOSSODYNIA [None]
  - HYPERHIDROSIS [None]
  - HYPOAESTHESIA [None]
  - INSOMNIA [None]
  - MUSCULAR WEAKNESS [None]
  - MYALGIA [None]
  - MYOFASCIAL PAIN SYNDROME [None]
  - NAIL DISORDER [None]
  - NASAL CONGESTION [None]
  - NAUSEA [None]
  - NERVOUS SYSTEM DISORDER [None]
  - PAIN [None]
  - PALPITATIONS [None]
  - PANIC ATTACK [None]
  - PARAESTHESIA [None]
  - PAROSMIA [None]
  - PHARYNGOLARYNGEAL PAIN [None]
  - PHOTOPHOBIA [None]
  - PNEUMONIA [None]
  - PRURITUS [None]
  - RASH [None]
  - RECTAL HAEMORRHAGE [None]
  - SALIVARY HYPERSECRETION [None]
  - SENSORY DISTURBANCE [None]
  - SWELLING FACE [None]
  - TACHYCARDIA [None]
  - TEMPERATURE INTOLERANCE [None]
  - TREMOR [None]
  - VISION BLURRED [None]
  - WEIGHT INCREASED [None]
